FAERS Safety Report 23442656 (Version 1)
Quarter: 2024Q1

REPORT INFORMATION
  Report Type: Report from Study
  Country: US (occurrence: None)
  Receive Date: 20240125
  Receipt Date: 20240125
  Transmission Date: 20240410
  Serious: Yes (Hospitalization, Other)
  Sender: FDA-Public Use
  Company Number: 2024A014694

PATIENT
  Sex: Male

DRUGS (3)
  1. LYNPARZA [Suspect]
     Active Substance: OLAPARIB
     Indication: Pancreatic carcinoma
     Route: 048
     Dates: start: 20231113
  2. CLIN PHARM 15% [Concomitant]
  3. CORTAID 10 [Concomitant]

REACTIONS (6)
  - Liver scan abnormal [Unknown]
  - Infection [Unknown]
  - Tumour marker increased [Unknown]
  - Rash pruritic [Unknown]
  - Rash erythematous [Unknown]
  - Rash papular [Unknown]
